FAERS Safety Report 25029269 (Version 5)
Quarter: 2025Q2

REPORT INFORMATION
  Report Type: Report from Study
  Country: US (occurrence: US)
  Receive Date: 20250303
  Receipt Date: 20250613
  Transmission Date: 20250717
  Serious: Yes (Other)
  Sender: TAKEDA
  Company Number: US-TAKEDA-2025TUS020827

PATIENT
  Age: 26 Year
  Sex: Female

DRUGS (4)
  1. VEDOLIZUMAB [Suspect]
     Active Substance: VEDOLIZUMAB
     Indication: Colitis ulcerative
  2. VEDOLIZUMAB [Suspect]
     Active Substance: VEDOLIZUMAB
  3. VEDOLIZUMAB [Suspect]
     Active Substance: VEDOLIZUMAB
     Indication: Colitis ulcerative
     Dosage: 108 MILLIGRAM, Q2WEEKS
     Dates: start: 20250424
  4. VEDOLIZUMAB [Suspect]
     Active Substance: VEDOLIZUMAB

REACTIONS (7)
  - Colitis ulcerative [Unknown]
  - Nervousness [Recovered/Resolved]
  - Injection site pain [Recovered/Resolved]
  - Drug ineffective [Not Recovered/Not Resolved]
  - Injection site extravasation [Unknown]
  - Incorrect dose administered [Unknown]
  - Asthenia [Unknown]

NARRATIVE: CASE EVENT DATE: 20250424
